FAERS Safety Report 7378248-6 (Version None)
Quarter: 2011Q1

REPORT INFORMATION
  Report Type: 
  Country: None (occurrence: None)
  Receive Date: 20110328
  Receipt Date: 20110321
  Transmission Date: 20110831
  Serious: Yes (Hospitalization)
  Sender: FDA-Public Use
  Company Number: B0707431A

PATIENT
  Age: 81 Year
  Sex: Female

DRUGS (5)
  1. FLAGYL [Concomitant]
     Route: 065
     Dates: end: 20101023
  2. VANCOMYCIN [Concomitant]
     Route: 048
     Dates: start: 20101024, end: 20101105
  3. ROVAMYCIN [Suspect]
     Route: 048
     Dates: start: 20101023, end: 20101024
  4. CIFLOX [Concomitant]
     Route: 065
     Dates: end: 20101023
  5. AUGMENTIN [Suspect]
     Route: 048
     Dates: start: 20101023, end: 20101024

REACTIONS (3)
  - PRURITUS [None]
  - ERYTHEMA MULTIFORME [None]
  - RASH MACULO-PAPULAR [None]
